FAERS Safety Report 5345037-3 (Version None)
Quarter: 2007Q2

REPORT INFORMATION
  Report Type: 
  Country: None (occurrence: None)
  Receive Date: 20070425
  Receipt Date: 20061116
  Transmission Date: 20071010
  Serious: Yes (Hospitalization)
  Sender: FDA-Public Use
  Company Number: 2006-BP-12892BP

PATIENT
  Age: 85 Year
  Sex: Male
  Weight: 76.2 kg

DRUGS (14)
  1. FLOMAX [Suspect]
     Indication: BENIGN PROSTATIC HYPERPLASIA
     Dosage: 0.4 MG (0.4 MG,1 IN 1 D)
     Dates: end: 20061026
  2. FLOMAX [Suspect]
     Indication: NOCTURIA
     Dosage: 0.4 MG (0.4 MG,1 IN 1 D)
     Dates: end: 20061026
  3. CELEBREX [Concomitant]
  4. GEMFIBROZIL [Concomitant]
  5. FOLIC ACID [Concomitant]
  6. BONIVA (IBANDRONATE SODIUM) [Concomitant]
  7. ATENOLOL [Concomitant]
  8. OSCAL + D (OSCAL /01746701/) [Concomitant]
  9. ISOSORBIDE (ISOSORBIDE) [Concomitant]
  10. VITAMIN B1 TAB [Concomitant]
  11. LOPID [Concomitant]
  12. ASPIRIN [Concomitant]
  13. CENTRUM SILVER (CENTRUM SILVER /01292501/) [Concomitant]
  14. ASCORBIC ACID [Concomitant]

REACTIONS (7)
  - DIZZINESS [None]
  - DROOLING [None]
  - HYPOAESTHESIA [None]
  - NAUSEA [None]
  - PERIPHERAL COLDNESS [None]
  - SYNCOPE [None]
  - VISION BLURRED [None]
